FAERS Safety Report 15541297 (Version 1)
Quarter: 2018Q4

REPORT INFORMATION
  Report Type: Spontaneous
  Country: CO (occurrence: CO)
  Receive Date: 20181023
  Receipt Date: 20181023
  Transmission Date: 20190205
  Serious: Yes (Other)
  Sender: FDA-Public Use
  Company Number: CO-009507513-1810COL008975

PATIENT
  Age: 16 Year
  Sex: Female
  Weight: 67 kg

DRUGS (1)
  1. IMPLANON [Suspect]
     Active Substance: ETONOGESTREL
     Indication: CONTRACEPTION
     Dosage: SUBDERMIC IMPLANT; SUPERIOR LEFT EXTREMITY
     Route: 059
     Dates: start: 2018

REACTIONS (10)
  - Urinary incontinence [Unknown]
  - Hyperhidrosis [Unknown]
  - Syncope [Unknown]
  - Vision blurred [Unknown]
  - Paraesthesia [Unknown]
  - Nausea [Unknown]
  - Gait disturbance [Unknown]
  - Loss of consciousness [Recovered/Resolved]
  - Syncope [Recovered/Resolved]
  - Dizziness [Unknown]

NARRATIVE: CASE EVENT DATE: 2018
